FAERS Safety Report 8529951-3 (Version None)
Quarter: 2012Q3

REPORT INFORMATION
  Report Type: 
  Country: None (occurrence: None)
  Receive Date: 20120723
  Receipt Date: 20120711
  Transmission Date: 20120928
  Serious: Yes (Hospitalization)
  Sender: FDA-Public Use
  Company Number: PHHO2012US008808

PATIENT
  Sex: Male
  Weight: 119.8 kg

DRUGS (3)
  1. ILARIS [Suspect]
     Indication: GOUTY ARTHRITIS
     Dosage: 150 MG, UNK
     Route: 058
     Dates: start: 20120412
  2. COLCHICINE [Concomitant]
     Indication: GOUT
     Dosage: 0.6 MG, PRN
     Dates: start: 20110801
  3. ALLOPURINOL [Concomitant]
     Indication: GOUT
     Dosage: 100 MG, BID
     Dates: start: 20111219

REACTIONS (1)
  - PNEUMONIA [None]
